FAERS Safety Report 8613366-3 (Version None)
Quarter: 2012Q3

REPORT INFORMATION
  Report Type: 
  Country: None (occurrence: None)
  Receive Date: 20120822
  Receipt Date: 20090416
  Transmission Date: 20120928
  Serious: Yes (Death, Other)
  Sender: FDA-Public Use
  Company Number: PHHY2009HN070776

PATIENT
  Sex: Female

DRUGS (1)
  1. IMATINIB MESYLATE [Suspect]
     Dates: start: 20081215

REACTIONS (4)
  - RESPIRATORY RATE INCREASED [None]
  - MYOCARDIAL INFARCTION [None]
  - LEUKAEMIA [None]
  - MASS [None]
